FAERS Safety Report 10098804 (Version 1)
Quarter: 2014Q2

REPORT INFORMATION
  Report Type: Spontaneous
  Country: US (occurrence: US)
  Receive Date: 20140423
  Receipt Date: 20140423
  Transmission Date: 20141212
  Serious: No
  Sender: FDA-Public Use
  Company Number: US-009507513-1404USA010605

PATIENT
  Sex: Female

DRUGS (6)
  1. MAXALT [Suspect]
     Indication: MIGRAINE
     Dosage: UNK
     Route: 048
  2. FLOMAX (MORNIFLUMATE) [Suspect]
     Dosage: UNK
  3. FLUOXETINE [Suspect]
     Dosage: UNK
  4. TRAMADOL HYDROCHLORIDE [Suspect]
  5. TOPAMAX [Suspect]
  6. MEDROL [Suspect]

REACTIONS (1)
  - Drug ineffective [Unknown]
